FAERS Safety Report 14858783 (Version 3)
Quarter: 2020Q4

REPORT INFORMATION
  Report Type: Spontaneous
  Country: US (occurrence: US)
  Receive Date: 20180508
  Receipt Date: 20201218
  Transmission Date: 20210113
  Serious: Yes (Disabling)
  Sender: FDA-Public Use
  Company Number: US-TEVA-2017-US-832533

PATIENT
  Age: 58 Year
  Sex: Female

DRUGS (12)
  1. DOCETAXEL SANOFI [Suspect]
     Active Substance: DOCETAXEL
     Indication: BREAST CANCER FEMALE
     Dosage: DOSAGE: UNKNOWN; NUMBER OF CYCLES: 06; EVERY THREE WEEKS
     Route: 065
     Dates: start: 20130701, end: 20131017
  2. TAXOTERE [Suspect]
     Active Substance: DOCETAXEL
     Indication: BREAST CANCER FEMALE
     Dosage: DOSAGE: 56.25MG/M2: 120MG; NUMBER OF CYCLES: 06; EVERY THREE WEEKS
     Route: 065
     Dates: start: 20130701, end: 20131017
  3. ADRIAMYCIN [Concomitant]
     Active Substance: DOXORUBICIN HYDROCHLORIDE
     Indication: BREAST CANCER FEMALE
     Dosage: DOSAGE: 37.5MG/M2: 80MG; NUMBER OF CYCLES: 06; EVERY THREE WEEKS
     Dates: start: 20130701, end: 20131017
  4. DOCETAXEL SAGENT [Suspect]
     Active Substance: DOCETAXEL
     Indication: BREAST CANCER FEMALE
     Dosage: DOSAGE: 120MG; NUMBER OF CYCLES: 06; EVERY THREE WEEKS
     Route: 065
     Dates: start: 20130701, end: 20131017
  5. CYTOXAN [Suspect]
     Active Substance: CYCLOPHOSPHAMIDE
     Indication: BREAST CANCER FEMALE
     Dosage: DOSAGE: 375MG/M2: 800MG; NUMBER OF CYCLES: 06; EVERY THREE WEEKS
     Dates: start: 20130701, end: 20131017
  6. ZOFRAN [Concomitant]
     Active Substance: ONDANSETRON HYDROCHLORIDE
     Dates: start: 2010, end: 2016
  7. DOCETAXEL WINTHROP [Suspect]
     Active Substance: DOCETAXEL
     Indication: BREAST CANCER FEMALE
     Dosage: DOSAGE: UNKNOWN; NUMBER OF CYCLES: 06; EVERY THREE WEEKS
     Route: 065
     Dates: start: 20130701, end: 20131017
  8. DOCETAXEL ACCORD [Suspect]
     Active Substance: DOCETAXEL
     Indication: BREAST CANCER FEMALE
     Dosage: DOSAGE: UNKNOWN; NUMBER OF CYCLES: 06; EVERY THREE WEEKS
     Route: 065
     Dates: start: 20130701, end: 20131017
  9. LORATADINE. [Concomitant]
     Active Substance: LORATADINE
     Dates: start: 2010, end: 2016
  10. HYDROXYZINE [Concomitant]
     Active Substance: HYDROXYZINE HYDROCHLORIDE
     Dates: start: 2010, end: 2016
  11. TRAMADOL. [Concomitant]
     Active Substance: TRAMADOL
     Dates: start: 2010, end: 2016
  12. PROCHLORPERAZINE. [Concomitant]
     Active Substance: PROCHLORPERAZINE
     Dates: start: 2010, end: 2016

REACTIONS (4)
  - Hair texture abnormal [Not Recovered/Not Resolved]
  - Madarosis [Not Recovered/Not Resolved]
  - Hair colour changes [Not Recovered/Not Resolved]
  - Alopecia areata [Not Recovered/Not Resolved]

NARRATIVE: CASE EVENT DATE: 201310
